FAERS Safety Report 22244855 (Version 1)
Quarter: 2023Q2

REPORT INFORMATION
  Report Type: Spontaneous
  Country: CH (occurrence: CH)
  Receive Date: 20230424
  Receipt Date: 20230424
  Transmission Date: 20230721
  Serious: Yes (Other)
  Sender: FDA-Public Use
  Company Number: None

PATIENT

DRUGS (12)
  1. LAMICTAL [Suspect]
     Active Substance: LAMOTRIGINE
     Indication: Post stroke seizure
     Dosage: 25 MG, QD
     Route: 048
     Dates: start: 20221129, end: 20221214
  2. LAMICTAL [Suspect]
     Active Substance: LAMOTRIGINE
     Dosage: 25 MG, BID
     Route: 048
     Dates: start: 20221214, end: 20221228
  3. LAMICTAL [Suspect]
     Active Substance: LAMOTRIGINE
     Dosage: UNK (25 MG MORNING AND 50 MG EVENING)
     Route: 048
     Dates: start: 20221228, end: 20230103
  4. LAMICTAL [Suspect]
     Active Substance: LAMOTRIGINE
     Dosage: 50 MG, BID
     Route: 048
     Dates: start: 20230103, end: 20230109
  5. LAMICTAL [Suspect]
     Active Substance: LAMOTRIGINE
     Dosage: UNK (50 MG MORNING AND 25 MG EVENING)
     Route: 048
     Dates: start: 20230110, end: 20230110
  6. LAMICTAL [Suspect]
     Active Substance: LAMOTRIGINE
     Dosage: 25 MG, QD
     Route: 048
     Dates: start: 20230111, end: 20230112
  7. LEVETIRACETAM [Suspect]
     Active Substance: LEVETIRACETAM
     Indication: Post stroke seizure
     Dosage: 1000 MG, BID
     Route: 065
     Dates: start: 20221129, end: 20230117
  8. LEVETIRACETAM [Suspect]
     Active Substance: LEVETIRACETAM
     Dosage: UNK (DECREASE IN INCREMENTS OF 250 MG EACH WEEK)
     Route: 065
     Dates: start: 20230118, end: 20230308
  9. ENOXAPARIN SODIUM [Concomitant]
     Active Substance: ENOXAPARIN SODIUM
     Indication: Thrombosis prophylaxis
     Dosage: 40 MG,QD,ONGOING
     Route: 058
  10. TRANDATE [Concomitant]
     Active Substance: LABETALOL HYDROCHLORIDE
     Indication: Hypertension
     Dosage: UNK,50-100-50 MG/D
     Route: 048
     Dates: start: 20221211
  11. RAMIPRIL [Concomitant]
     Active Substance: RAMIPRIL
     Indication: Hypertension
     Dosage: 10 MG,QD
     Route: 048
     Dates: start: 20221211
  12. PANTOPRAZOLE [Concomitant]
     Active Substance: PANTOPRAZOLE
     Indication: Upper gastrointestinal haemorrhage
     Dosage: 20 MG,QD
     Route: 048
     Dates: start: 20221211

REACTIONS (1)
  - Drug reaction with eosinophilia and systemic symptoms [Recovered/Resolved]

NARRATIVE: CASE EVENT DATE: 20221230
